FAERS Safety Report 8328774-8 (Version None)
Quarter: 2012Q2

REPORT INFORMATION
  Report Type: 
  Country: None (occurrence: None)
  Receive Date: 20120502
  Receipt Date: 20120427
  Transmission Date: 20120825
  Serious: Yes (Death)
  Sender: FDA-Public Use
  Company Number: US-SANOFI-AVENTIS-2012SA028094

PATIENT
  Age: 63 Year
  Sex: Female
  Weight: 71 kg

DRUGS (16)
  1. TRASTUZUMAB [Suspect]
     Dosage: FORMS: VIAL;DOSE LEVEL 8 MG/KG
     Route: 042
     Dates: start: 20090317, end: 20090327
  2. TYLENOL (CAPLET) [Concomitant]
  3. DONNATAL [Concomitant]
  4. CARBOPLATIN [Suspect]
     Dosage: DOSE LEVEL: 6 AUC;FORM: VIAL
     Route: 042
     Dates: start: 20090317, end: 20090327
  5. SUMATRIPTAN [Concomitant]
  6. ZANTAC [Concomitant]
  7. FIORICET [Concomitant]
  8. PROPRANOLOL HYDROCHLORIDE [Concomitant]
     Indication: HYPERTENSION
  9. PROPRANOLOL HYDROCHLORIDE [Concomitant]
     Indication: MIGRAINE
  10. RETIN-A [Concomitant]
  11. ADVAIR DISKUS 100/50 [Concomitant]
  12. CLINDAMYCIN [Concomitant]
  13. BEVACIZUMAB [Suspect]
     Dosage: DOSE LEVEL 15 MG/KG;FORM:VIAL
     Route: 042
     Dates: start: 20090317, end: 20090327
  14. ALLEGRA [Concomitant]
  15. ELAVIL [Concomitant]
     Indication: MIGRAINE
  16. DOCETAXEL [Suspect]
     Dosage: FORM:VIAL;DOSE LEVEL 75 MG/M2
     Route: 042
     Dates: start: 20090317, end: 20090327

REACTIONS (1)
  - NEUTROPENIC SEPSIS [None]
